FAERS Safety Report 16119239 (Version 1)
Quarter: 2019Q1

REPORT INFORMATION
  Report Type: Spontaneous
  Country: FR (occurrence: FR)
  Receive Date: 20190326
  Receipt Date: 20190326
  Transmission Date: 20190418
  Serious: Yes (Hospitalization, Other)
  Sender: FDA-Public Use
  Company Number: FR-PFIZER INC-2019123608

PATIENT
  Age: 6 Year
  Sex: Female
  Weight: 21 kg

DRUGS (3)
  1. DOXORUBICIN ACCORD [Suspect]
     Active Substance: DOXORUBICIN HYDROCHLORIDE
     Indication: EWING-LIKE SARCOMA
     Dosage: 34 MG, 1X/DAY
     Route: 041
     Dates: start: 20180206, end: 20180207
  2. VINCRISTINE HOSPIRA [Suspect]
     Active Substance: VINCRISTINE
     Indication: EWING-LIKE SARCOMA
     Dosage: 1.3 MG, UNK
     Route: 041
     Dates: start: 20180206
  3. ENDOXAN [CYCLOPHOSPHAMIDE] [Suspect]
     Active Substance: CYCLOPHOSPHAMIDE
     Indication: EWING-LIKE SARCOMA
     Dosage: 1060 MG, UNK
     Route: 041
     Dates: start: 20180206, end: 20180206

REACTIONS (2)
  - Lung disorder [Recovered/Resolved]
  - Febrile bone marrow aplasia [Recovered/Resolved]

NARRATIVE: CASE EVENT DATE: 201802
